FAERS Safety Report 15560678 (Version 1)
Quarter: 2018Q4

REPORT INFORMATION
  Report Type: Spontaneous
  Country: US (occurrence: US)
  Receive Date: 20181029
  Receipt Date: 20181029
  Transmission Date: 20190205
  Serious: No
  Sender: FDA-Public Use
  Company Number: US-PFIZER INC-2018423232

PATIENT
  Age: 88 Year
  Sex: Male
  Weight: 87.75 kg

DRUGS (10)
  1. LYRICA [Suspect]
     Active Substance: PREGABALIN
     Indication: NEURALGIA
     Dosage: 50 MG, 1X/DAY
     Route: 048
     Dates: start: 20181005, end: 20181005
  2. BRIMONIDINE [Concomitant]
     Active Substance: BRIMONIDINE TARTRATE
     Indication: ASTHENOPIA
     Dosage: 2 GTT, 2X/DAY (BOTH EYES)
     Route: 047
  3. LYRICA [Suspect]
     Active Substance: PREGABALIN
     Indication: HERPES ZOSTER
     Dosage: 50 MG, 2X/DAY
     Route: 048
     Dates: start: 20181006, end: 20181006
  4. OFLOXACIN. [Concomitant]
     Active Substance: OFLOXACIN
     Indication: BACTERIAL INFECTION
     Dosage: 1 GTT, UNK (ONE DROP SIX TIMES A DAY IN THE RIGHT EYE)
     Route: 047
  5. PREDNISOLONE. [Concomitant]
     Active Substance: PREDNISOLONE
     Indication: BACTERIAL INFECTION
     Dosage: 1 GTT, 4X/DAY (ONE DROP FOUR TIMES A EVERY DAY INTO RIGHT EYE)
     Route: 047
  6. DOXYCYCLINE HYCLATE. [Concomitant]
     Active Substance: DOXYCYCLINE HYCLATE
     Dosage: 100 MG, DAILY
     Route: 048
  7. GABAPENTIN. [Concomitant]
     Active Substance: GABAPENTIN
     Indication: NEURALGIA
     Dosage: 300 MG, 3X/DAY
     Route: 048
     Dates: start: 2012
  8. AZATHIOPRINE SODIUM. [Concomitant]
     Active Substance: AZATHIOPRINE SODIUM
     Dosage: 2 DF, 1X/DAY
     Dates: start: 2010
  9. VALACYCLOVIR HCL [Concomitant]
     Active Substance: VALACYCLOVIR HYDROCHLORIDE
     Indication: ANTIVIRAL TREATMENT
     Dosage: 2 500MG TABLETS, 3X/DAY
  10. LYRICA [Suspect]
     Active Substance: PREGABALIN
     Indication: NERVE INJURY
     Dosage: 50 MG, 3X/DAY
     Route: 048
     Dates: start: 20181007, end: 20181011

REACTIONS (10)
  - Rash [Recovering/Resolving]
  - Decreased appetite [Recovering/Resolving]
  - Fatigue [Recovering/Resolving]
  - Gait disturbance [Recovering/Resolving]
  - Tremor [Recovered/Resolved]
  - Feeling cold [Recovered/Resolved]
  - Hyperhidrosis [Recovered/Resolved]
  - Nausea [Recovering/Resolving]
  - Peripheral swelling [Recovering/Resolving]
  - Balance disorder [Recovering/Resolving]

NARRATIVE: CASE EVENT DATE: 20181007
